FAERS Safety Report 23098542 (Version 1)
Quarter: 2023Q4

REPORT INFORMATION
  Report Type: Spontaneous
  Country: EU (occurrence: EU)
  Receive Date: 20231023
  Receipt Date: 20231023
  Transmission Date: 20240109
  Serious: Yes (Other)
  Sender: FDA-Public Use
  Company Number: EU-ETHYPHARM-2023002594

PATIENT

DRUGS (4)
  1. BUPRENORPHINE HYDROCHLORIDE [Suspect]
     Active Substance: BUPRENORPHINE HYDROCHLORIDE
     Indication: Substance use
     Dosage: HALF A TABLET
  2. VENLAFAXINE [Concomitant]
     Active Substance: VENLAFAXINE HYDROCHLORIDE
     Indication: Depression
  3. BROMAZEPAM [Concomitant]
     Active Substance: BROMAZEPAM
     Indication: Anxiety disorder
  4. CYAMEMAZINE [Concomitant]
     Active Substance: CYAMEMAZINE
     Indication: Anxiety disorder

REACTIONS (4)
  - Drug abuse [Unknown]
  - Amnesia [Unknown]
  - Feeling abnormal [Unknown]
  - Euphoric mood [Unknown]
